FAERS Safety Report 5446994-7 (Version None)
Quarter: 2007Q3

REPORT INFORMATION
  Report Type: 
  Country: None (occurrence: None)
  Receive Date: 20070810
  Receipt Date: 20060508
  Transmission Date: 20080115
  Serious: Yes (Other)
  Sender: FDA-Public Use
  Company Number: A03200602889

PATIENT
  Age: 78 Year
  Sex: Male

DRUGS (9)
  1. UROXATRAL [Suspect]
     Indication: BENIGN PROSTATIC HYPERPLASIA
     Dosage: 10 MG QD-ORAL
     Route: 048
     Dates: start: 20050101
  2. CARDIZEM CD [Suspect]
     Dosage: 180 MG QD ORAL
     Route: 048
     Dates: end: 20060101
  3. MEMANTINE HCL [Suspect]
     Indication: DEMENTIA ALZHEIMER'S TYPE
     Dosage: 10 MG BID-ORAL
     Route: 048
     Dates: start: 20051101
  4. DIGOXIN [Suspect]
     Indication: ATRIAL FIBRILLATION
     Dosage: 0.25 MG QD ORAL
     Route: 048
     Dates: start: 20060101, end: 20060401
  5. DIGOXIN [Suspect]
     Indication: ATRIAL FIBRILLATION
     Dosage: 0.125 MG QD-ORAL
     Route: 048
     Dates: start: 20060401
  6. PIOGLITAZONE HCL [Concomitant]
  7. GLIMEPIRIDE [Concomitant]
  8. ATORVASTATIN CALCIUM [Concomitant]
  9. FLUTICASONE/SALMETEROL [Concomitant]

REACTIONS (2)
  - HYPOTENSION [None]
  - ORTHOSTATIC HYPOTENSION [None]
